FAERS Safety Report 19118039 (Version 1)
Quarter: 2021Q2

REPORT INFORMATION
  Report Type: Spontaneous
  Country: US (occurrence: US)
  Receive Date: 20210409
  Receipt Date: 20210409
  Transmission Date: 20210717
  Serious: Yes (Other)
  Sender: FDA-Public Use
  Company Number: US-ASTRAZENECA-2021A273547

PATIENT
  Age: 51 Year
  Sex: Female

DRUGS (3)
  1. OMEPRAZOLE. [Suspect]
     Active Substance: OMEPRAZOLE
     Route: 048
  2. METOPROLOL. [Suspect]
     Active Substance: METOPROLOL
     Route: 065
  3. ELIQUIS [Concomitant]
     Active Substance: APIXABAN
     Dosage: 50MG 2X/DAY

REACTIONS (10)
  - Pruritus [Unknown]
  - Drug hypersensitivity [Unknown]
  - Chills [Unknown]
  - Headache [Unknown]
  - Hyperhidrosis [Unknown]
  - Pain [Unknown]
  - COVID-19 [Unknown]
  - Pyrexia [Unknown]
  - Irregular breathing [Unknown]
  - Heart rate increased [Unknown]
